FAERS Safety Report 8769739 (Version 1)
Quarter: 2012Q4

REPORT INFORMATION
  Report Type: 
  Country: US (occurrence: US)
  Receive Date: 20120905
  Receipt Date: 20120905
  Transmission Date: 20130627
  Serious: Yes (Hospitalization, Other)
  Sender: FDA-Public Use
  Company Number: US-B.I. PHARMACEUTICALS,INC./RIDGEFIELD-2012-BP-20943BP

PATIENT
  Age: 77 Year
  Sex: Female

DRUGS (9)
  1. COMBIVENT [Suspect]
     Indication: EMPHYSEMA
     Route: 055
     Dates: start: 2009
  2. SIMVASTATIN [Concomitant]
     Route: 048
  3. PLAVIX [Concomitant]
     Indication: CARDIAC DISORDER
     Route: 048
  4. METOPROLOL [Concomitant]
     Indication: HYPERTENSION
     Route: 048
  5. LISINOPRIL [Concomitant]
     Route: 048
  6. TABLORKIN [Concomitant]
     Route: 048
  7. PRILOSEC [Concomitant]
     Indication: DYSPEPSIA
     Route: 048
  8. BABY ASPIRIN [Concomitant]
     Route: 048
  9. BREATHING TREATMENT [Concomitant]

REACTIONS (3)
  - Breast cancer [Not Recovered/Not Resolved]
  - Arthropathy [Recovered/Resolved]
  - Product quality issue [Recovered/Resolved]
